FAERS Safety Report 7728886-3 (Version None)
Quarter: 2011Q3

REPORT INFORMATION
  Report Type: 
  Country: None (occurrence: None)
  Receive Date: 20110906
  Receipt Date: 20110826
  Transmission Date: 20111222
  Serious: Yes (Other)
  Sender: FDA-Public Use
  Company Number: PHHY2011US76696

PATIENT
  Age: 49 Year
  Sex: Female

DRUGS (5)
  1. METHOTREXATE [Suspect]
  2. FLUDARABINE PHOSPHATE [Suspect]
  3. CLADRIBINE [Suspect]
  4. VINBLASTINE SULFATE [Suspect]
     Dosage: UNK
  5. CYCLOPHOSPHAMIDE [Suspect]

REACTIONS (6)
  - SKIN DISORDER [None]
  - LANGERHANS' CELL HISTIOCYTOSIS [None]
  - NEUTROPENIA [None]
  - PAIN [None]
  - DRUG INEFFECTIVE [None]
  - NEUROPATHY PERIPHERAL [None]
